FAERS Safety Report 6284988-2 (Version None)
Quarter: 2009Q3

REPORT INFORMATION
  Report Type: 
  Country: None (occurrence: None)
  Receive Date: 20090727
  Receipt Date: 20090226
  Transmission Date: 20100115
  Serious: No
  Sender: FDA-Public Use
  Company Number: US-ABBOTT-09P-163-0562235-00

PATIENT
  Age: 47 Year

DRUGS (3)
  1. NORVIR [Suspect]
     Indication: DRUG USE FOR UNKNOWN INDICATION
  2. TIPRANAVIR [Suspect]
     Indication: DRUG USE FOR UNKNOWN INDICATION
     Dosage: /100MG
  3. TRUVADA [Suspect]
     Indication: DRUG USE FOR UNKNOWN INDICATION

REACTIONS (3)
  - ABDOMINAL DISTENSION [None]
  - FATIGUE [None]
  - ILL-DEFINED DISORDER [None]
